FAERS Safety Report 4352275-5 (Version None)
Quarter: 2004Q2

REPORT INFORMATION
  Report Type: 
  Country: None (occurrence: None)
  Receive Date: 20040416
  Receipt Date: 20030220
  Transmission Date: 20050107
  Serious: Yes (Hospitalization)
  Sender: FDA-Public Use
  Company Number: 2003-BP-01143BP

PATIENT
  Age: 69 Year
  Sex: Male

DRUGS (2)
  1. FLOMAX [Suspect]
     Indication: BLADDER CANCER
     Dosage: 0.8 MG (0.4 MG, 2 QD) PO
     Route: 048
     Dates: start: 20021101, end: 20030201
  2. CAPOTEN [Concomitant]

REACTIONS (1)
  - LOSS OF CONSCIOUSNESS [None]
